FAERS Safety Report 16785121 (Version 4)
Quarter: 2020Q1

REPORT INFORMATION
  Report Type: Spontaneous
  Country: JP (occurrence: JP)
  Receive Date: 20190909
  Receipt Date: 20200207
  Transmission Date: 20200409
  Serious: Yes (Death, Hospitalization, Other)
  Sender: FDA-Public Use
  Company Number: JP-ACTELION-A-CH2019-195122

PATIENT
  Age: 56 Year
  Sex: Male

DRUGS (12)
  1. URSO [Concomitant]
     Active Substance: URSODIOL
     Dosage: 200 MG, TID
     Route: 048
     Dates: start: 201806
  2. FEBURIC [Concomitant]
     Active Substance: FEBUXOSTAT
     Dosage: 40 MG, QD
     Route: 048
  3. OPSUMIT [Suspect]
     Active Substance: MACITENTAN
     Indication: PULMONARY HYPERTENSION
     Dosage: 10 MG, QD
     Route: 048
     Dates: start: 20181101, end: 20181105
  4. PREDONINE [Concomitant]
     Active Substance: PREDNISOLONE
     Dosage: 15 MG, BID
     Route: 048
     Dates: start: 201806
  5. CYCLOSPORINE. [Concomitant]
     Active Substance: CYCLOSPORINE
     Route: 048
  6. ACICLOVIR [Concomitant]
     Active Substance: ACYCLOVIR
     Dosage: 200 MG, QD
     Route: 048
     Dates: start: 201806
  7. TOLVAPTAN [Concomitant]
     Active Substance: TOLVAPTAN
     Dosage: 3.75 MG, QD
     Route: 048
     Dates: start: 201806
  8. AZOSEMIDE [Concomitant]
     Active Substance: AZOSEMIDE
     Dosage: 60 MG, QD
     Route: 048
     Dates: start: 201806
  9. MIYA-BM [Concomitant]
     Active Substance: CLOSTRIDIUM BUTYRICUM SPORES STRAIN M-55
     Dosage: 2 DF, TID
     Route: 048
     Dates: start: 201806
  10. ALDACTONE A [Concomitant]
     Active Substance: SPIRONOLACTONE
  11. SPIRONOLACTONE. [Concomitant]
     Active Substance: SPIRONOLACTONE
     Dosage: 25 MG, QD
     Route: 048
     Dates: start: 201806
  12. SAMSCA [Concomitant]
     Active Substance: TOLVAPTAN

REACTIONS (19)
  - Blood urea increased [Unknown]
  - Red blood cell count decreased [Unknown]
  - Haemoglobin decreased [Unknown]
  - Platelet count abnormal [Unknown]
  - Pneumonia [Fatal]
  - Dyspnoea [Not Recovered/Not Resolved]
  - Respiratory failure [Not Recovered/Not Resolved]
  - Septic shock [Fatal]
  - C-reactive protein increased [Fatal]
  - Pulmonary alveolar haemorrhage [Fatal]
  - Blood bilirubin increased [Unknown]
  - Pulmonary veno-occlusive disease [Not Recovered/Not Resolved]
  - Hepatic enzyme increased [Unknown]
  - Alanine aminotransferase increased [Unknown]
  - Aspartate aminotransferase increased [Unknown]
  - Gamma-glutamyltransferase increased [Unknown]
  - White blood cell count decreased [Unknown]
  - Pulmonary vein occlusion [Fatal]
  - Blood alkaline phosphatase increased [Unknown]

NARRATIVE: CASE EVENT DATE: 20181105
